FAERS Safety Report 4777909-2 (Version None)
Quarter: 2005Q3

REPORT INFORMATION
  Report Type: 
  Country: None (occurrence: None)
  Receive Date: 20050921
  Receipt Date: 20050906
  Transmission Date: 20060218
  Serious: Yes (Other)
  Sender: FDA-Public Use
  Company Number: A-JP2005-10484

PATIENT
  Age: 33 Year
  Sex: Female

DRUGS (9)
  1. TRACLEER [Suspect]
     Indication: PULMONARY HYPERTENSION
     Dosage: 15.625 MG, QD, ORAL
     Route: 048
     Dates: start: 20050816, end: 20050818
  2. FLOLAN [Concomitant]
  3. THYROID DRIED (THYROID) [Concomitant]
  4. DIGOXIN [Concomitant]
  5. BENEXATE HYDROCHLORIDE BETADEX (BENEXATE HYDROCHLORIDE) [Concomitant]
  6. SPIRONOLACTONE [Concomitant]
  7. FUROSEMIDE [Concomitant]
  8. TORSEMIDE [Concomitant]
  9. VITAMIN C (ASCORBIC ACID) [Concomitant]

REACTIONS (8)
  - ALANINE AMINOTRANSFERASE INCREASED [None]
  - ASPARTATE AMINOTRANSFERASE INCREASED [None]
  - BLOOD ALKALINE PHOSPHATASE INCREASED [None]
  - BLOOD BILIRUBIN INCREASED [None]
  - INFLAMMATION [None]
  - NAUSEA [None]
  - PYREXIA [None]
  - WHITE BLOOD CELL COUNT INCREASED [None]
